FAERS Safety Report 10192366 (Version 1)
Quarter: 2014Q2

REPORT INFORMATION
  Report Type: Spontaneous
  Country: US (occurrence: US)
  Receive Date: 20140523
  Receipt Date: 20140523
  Transmission Date: 20141212
  Serious: Yes (Hospitalization)
  Sender: FDA-Public Use
  Company Number: US-BAYER-2014-074908

PATIENT
  Age: 33 Year
  Sex: Female
  Weight: 142 kg

DRUGS (2)
  1. YASMIN [Suspect]
  2. BIAXIN XL [Concomitant]
     Indication: BRONCHITIS

REACTIONS (1)
  - Deep vein thrombosis [None]
